FAERS Safety Report 6662099-1 (Version None)
Quarter: 2010Q1

REPORT INFORMATION
  Report Type: 
  Country: None (occurrence: None)
  Receive Date: 20100331
  Receipt Date: 20100319
  Transmission Date: 20100710
  Serious: No
  Sender: FDA-Public Use
  Company Number: US-B.I. PHARMACEUTICALS,INC./RIDGEFIELD-2010-BP-03371BP

PATIENT

DRUGS (2)
  1. SPIRIVA [Suspect]
  2. ANTIHISTAMINE [Concomitant]

REACTIONS (2)
  - DRY EYE [None]
  - DRY MOUTH [None]
